FAERS Safety Report 7939992-2 (Version None)
Quarter: 2011Q4

REPORT INFORMATION
  Report Type: 
  Country: None (occurrence: None)
  Receive Date: 20111125
  Receipt Date: 20111122
  Transmission Date: 20120403
  Serious: Yes (Life-Threatening, Hospitalization)
  Sender: FDA-Public Use
  Company Number: JP-SANOFI-AVENTIS-2011SA075294

PATIENT
  Age: 66 Year
  Sex: Male

DRUGS (7)
  1. CAPECITABINE [Concomitant]
     Indication: LARGE INTESTINE CARCINOMA
     Route: 048
     Dates: start: 20110331
  2. LEVOLEUCOVORIN CALCIUM [Suspect]
     Indication: LARGE INTESTINE CARCINOMA
     Route: 041
     Dates: start: 20110512, end: 20110930
  3. FLUOROURACIL [Suspect]
     Route: 041
     Dates: start: 20110512, end: 20110930
  4. APREPITANT [Concomitant]
     Indication: PROPHYLAXIS
     Route: 048
  5. OXALIPLATIN [Suspect]
     Indication: LARGE INTESTINE CARCINOMA
     Route: 041
     Dates: start: 20110331, end: 20110929
  6. FLUOROURACIL [Suspect]
     Indication: LARGE INTESTINE CARCINOMA
     Route: 040
     Dates: start: 20110512, end: 20110930
  7. AVASTIN [Suspect]
     Indication: LARGE INTESTINE CARCINOMA
     Route: 041
     Dates: start: 20110331, end: 20110929

REACTIONS (1)
  - HAEMOLYTIC URAEMIC SYNDROME [None]
